FAERS Safety Report 25786952 (Version 1)
Quarter: 2025Q3

REPORT INFORMATION
  Report Type: Spontaneous
  Country: US (occurrence: US)
  Receive Date: 20250910
  Receipt Date: 20250910
  Transmission Date: 20251020
  Serious: No
  Sender: ANI
  Company Number: US-ANIPHARMA-2025-US-014754

PATIENT
  Age: 76 Year
  Sex: Male

DRUGS (21)
  1. CORTICOTROPIN [Suspect]
     Active Substance: CORTICOTROPIN
     Indication: Rheumatoid arthritis
     Route: 058
  2. TAMSULOSIN HYDROCHLORIDE [Concomitant]
     Active Substance: TAMSULOSIN HYDROCHLORIDE
  3. CHEWABLE MULTIVITAMINS/FL [Concomitant]
  4. HUMALOG [Concomitant]
     Active Substance: INSULIN LISPRO
  5. FOLIC ACID [Concomitant]
     Active Substance: FOLIC ACID
  6. ACTEMRA [Concomitant]
     Active Substance: TOCILIZUMAB
  7. HERBALS\WITHANIA SOMNIFERA ROOT [Concomitant]
     Active Substance: HERBALS\WITHANIA SOMNIFERA ROOT
  8. LISINOPRIL [Concomitant]
     Active Substance: LISINOPRIL
  9. AMITRIPTYLINE HYDROCHLORIDE [Concomitant]
     Active Substance: AMITRIPTYLINE HYDROCHLORIDE
  10. ALEVE [Concomitant]
     Active Substance: NAPROXEN SODIUM
  11. VITAMIN D3 [Concomitant]
     Active Substance: CHOLECALCIFEROL
  12. ELIQUIS [Concomitant]
     Active Substance: APIXABAN
  13. METFORMIN HYDROCHLORIDE [Concomitant]
     Active Substance: METFORMIN HYDROCHLORIDE
  14. OMEPRAZOLE [Concomitant]
     Active Substance: OMEPRAZOLE
  15. METOPROLOL TARTRATE [Concomitant]
     Active Substance: METOPROLOL TARTRATE
  16. B12 [Concomitant]
  17. PREDNISONE [Concomitant]
     Active Substance: PREDNISONE
  18. ATORVASTATIN [Concomitant]
     Active Substance: ATORVASTATIN
  19. POTASSIUM [Concomitant]
     Active Substance: POTASSIUM
  20. OZEMPIC [Suspect]
     Active Substance: SEMAGLUTIDE
  21. ASPIRIN [Concomitant]
     Active Substance: ASPIRIN

REACTIONS (1)
  - Abdominal discomfort [Unknown]
